FAERS Safety Report 20342912 (Version 1)
Quarter: 2022Q1

REPORT INFORMATION
  Report Type: Spontaneous
  Country: US (occurrence: US)
  Receive Date: 20220117
  Receipt Date: 20220117
  Transmission Date: 20220424
  Serious: No
  Sender: FDA-Public Use
  Company Number: US-BioDelivery Sciences International-2021BDSI0573

PATIENT
  Sex: Female

DRUGS (5)
  1. BUPRENORPHINE [Suspect]
     Active Substance: BUPRENORPHINE
     Indication: Pain
     Route: 002
     Dates: start: 2021, end: 20211115
  2. BUPRENORPHINE [Suspect]
     Active Substance: BUPRENORPHINE
     Route: 002
     Dates: start: 20211116
  3. ACETAMINOPHEN\HYDROCODONE BITARTRATE [Concomitant]
     Active Substance: ACETAMINOPHEN\HYDROCODONE BITARTRATE
     Indication: Pain
     Dosage: UNKNOWN
     Route: 048
     Dates: start: 2006
  4. TORSEMIDE [Concomitant]
     Active Substance: TORSEMIDE
     Indication: Product used for unknown indication
     Route: 065
  5. HYDROCHLOROTHIAZIDE\SPIRONOLACTONE [Concomitant]
     Active Substance: HYDROCHLOROTHIAZIDE\SPIRONOLACTONE
     Indication: Product used for unknown indication
     Dosage: 25 MG/ 25 MG
     Route: 065

REACTIONS (4)
  - Wrong technique in product usage process [Unknown]
  - Therapeutic response decreased [Unknown]
  - Incorrect route of product administration [Recovered/Resolved]
  - Product solubility abnormal [Unknown]

NARRATIVE: CASE EVENT DATE: 20210101
